FAERS Safety Report 5609168-2 (Version None)
Quarter: 2008Q1

REPORT INFORMATION
  Report Type: 
  Country: None (occurrence: None)
  Receive Date: 20080131
  Receipt Date: 20080130
  Transmission Date: 20080703
  Serious: Yes (Hospitalization)
  Sender: FDA-Public Use
  Company Number: US-TEVA-166949USA

PATIENT
  Sex: Female
  Weight: 77.18 kg

DRUGS (3)
  1. CEPHALEXIN CAPSULES USP, 250MG, 500MG [Suspect]
     Indication: CYSTITIS
     Route: 048
     Dates: start: 20071231, end: 20080101
  2. METOPROLOL SUCCINATE [Concomitant]
     Indication: HYPERTENSION
     Route: 048
  3. LEVOTHYROXINE SODIUM [Concomitant]
     Indication: HYPOTHYROIDISM
     Route: 048

REACTIONS (3)
  - DIZZINESS [None]
  - HYPERTENSION [None]
  - VISUAL DISTURBANCE [None]
